FAERS Safety Report 21472867 (Version 2)
Quarter: 2022Q4

REPORT INFORMATION
  Report Type: Report from Study
  Country: PT (occurrence: None)
  Receive Date: 20221018
  Receipt Date: 20221103
  Transmission Date: 20230113
  Serious: Yes (Hospitalization, Other)
  Sender: FDA-Public Use
  Company Number: PT-Merck Healthcare KGaA-9311909

PATIENT
  Age: 46 Year
  Sex: Male

DRUGS (4)
  1. MAVENCLAD [Suspect]
     Active Substance: CLADRIBINE
     Indication: Relapsing-remitting multiple sclerosis
     Dosage: YEAR ONE CYCLE ONE THERAPY: TWO TABLETS ON DAYS 1 TO 3 AND ONE TABLET ON DAY 4 AND 5
     Route: 048
     Dates: start: 20200928
  2. MAVENCLAD [Suspect]
     Active Substance: CLADRIBINE
     Dosage: YEAR ONE CYCLE TWO THERAPY: TWO TABLETS ON DAY 1 AND 2 AND ONE TABLET ON DAYS 3 TO 5
     Route: 048
     Dates: start: 20201026
  3. MAVENCLAD [Suspect]
     Active Substance: CLADRIBINE
     Dosage: YEAR TWO CYCLE ONE THERAPY: TWO TABLETS ON DAYS 1 TO 3 AND ONE TABLET ON DAYS 4 AND 5
     Route: 048
     Dates: start: 202110
  4. MAVENCLAD [Suspect]
     Active Substance: CLADRIBINE
     Dosage: YEAR TWO CYCLE TWO THERAPY
     Route: 048
     Dates: end: 20211112

REACTIONS (3)
  - Myelodysplastic syndrome [Unknown]
  - Pneumonia [Unknown]
  - Multiple sclerosis [Unknown]

NARRATIVE: CASE EVENT DATE: 20220901
